FAERS Safety Report 5646011-X (Version None)
Quarter: 2008Q1

REPORT INFORMATION
  Report Type: 
  Country: None (occurrence: None)
  Receive Date: 20080227
  Receipt Date: 20080220
  Transmission Date: 20080703
  Serious: Yes (Life-Threatening, Hospitalization)
  Sender: FDA-Public Use
  Company Number: B0509770A

PATIENT
  Sex: Male

DRUGS (1)
  1. ZINACEF [Suspect]
     Indication: PROPHYLAXIS
     Dosage: 3 ML
     Dates: start: 20080219, end: 20080219

REACTIONS (3)
  - CHEST PAIN [None]
  - DYSPNOEA [None]
  - RASH [None]
